FAERS Safety Report 8447218-9 (Version None)
Quarter: 2012Q2

REPORT INFORMATION
  Report Type: 
  Country: None (occurrence: None)
  Receive Date: 20120612
  Receipt Date: 20120601
  Transmission Date: 20120825
  Serious: Yes (Other)
  Sender: FDA-Public Use
  Company Number: 2012SP024688

PATIENT
  Age: 67 Year
  Sex: Male
  Weight: 68 kg

DRUGS (9)
  1. LASIX [Concomitant]
  2. BISOPROLOL FUMARATE [Concomitant]
  3. LOSARTAN POTASSIUM AND HYDROCHLOROTHIAZIDE [Concomitant]
  4. HALFDOXIGIN [Concomitant]
  5. CONIEL [Concomitant]
  6. PEG-INTRON [Suspect]
     Indication: PRODUCT USED FOR UNKNOWN INDICATION
     Dosage: 1.5 MCG/KG;QW;SC
     Route: 058
     Dates: start: 20120418, end: 20120418
  7. REBETOL [Suspect]
     Indication: PRODUCT USED FOR UNKNOWN INDICATION
     Dosage: 800 MG;QD;PO
     Route: 048
     Dates: start: 20120418, end: 20120420
  8. WARFARIN SODIUM [Concomitant]
  9. TELAVIC (ANTIVIRALS NOS) [Suspect]
     Indication: PRODUCT USED FOR UNKNOWN INDICATION
     Dosage: 2250 MG;QD;PO
     Route: 048
     Dates: start: 20120418, end: 20120420

REACTIONS (9)
  - RENAL FAILURE ACUTE [None]
  - RENAL DISORDER [None]
  - HEART RATE DECREASED [None]
  - MALAISE [None]
  - URINE FLOW DECREASED [None]
  - BLOOD PRESSURE DECREASED [None]
  - PYREXIA [None]
  - URINE OUTPUT DECREASED [None]
  - ANAEMIA [None]
